FAERS Safety Report 8540762 (Version 2)
Quarter: 2013Q1

REPORT INFORMATION
  Report Type: Spontaneous
  Country: US (occurrence: US)
  Receive Date: 20120502
  Receipt Date: 20130103
  Transmission Date: 20140127
  Serious: Yes (Hospitalization)
  Sender: FDA-Public Use
  Company Number: US-BAYER-2012-041525

PATIENT
  Age: 18 Year
  Sex: Female
  Weight: 54.42 kg

DRUGS (6)
  1. YAZ [Suspect]
     Indication: CONTRACEPTION
     Dosage: UNK
     Dates: start: 200702, end: 200706
  2. YAZ [Suspect]
     Indication: PREMENSTRUAL SYNDROME
  3. IBUPROFEN [Concomitant]
     Indication: PELVIC PAIN
  4. ULTRACET [Concomitant]
     Dosage: 37.5 / 325 MG
  5. AMBIEN [Concomitant]
  6. PERCOCET [Concomitant]

REACTIONS (7)
  - Gallbladder disorder [None]
  - Cholecystitis chronic [None]
  - Abdominal pain [None]
  - Injury [None]
  - Pain [None]
  - Emotional distress [None]
  - General physical health deterioration [None]
